FAERS Safety Report 16067394 (Version 2)
Quarter: 2019Q1

REPORT INFORMATION
  Report Type: Report from Study
  Country: US (occurrence: US)
  Receive Date: 20190313
  Receipt Date: 20190319
  Transmission Date: 20190418
  Serious: Yes (Disabling, Other)
  Sender: FDA-Public Use
  Company Number: US-AMGEN-USASL2018187703

PATIENT
  Sex: Male

DRUGS (4)
  1. ENBREL [Suspect]
     Active Substance: ETANERCEPT
     Indication: RHEUMATOID ARTHRITIS
     Dosage: UNK UNK, QMO
     Route: 065
     Dates: start: 200601, end: 2006
  2. ENBREL [Suspect]
     Active Substance: ETANERCEPT
     Dosage: UNK
     Route: 065
     Dates: start: 200901, end: 200907
  3. HUMIRA [Concomitant]
     Active Substance: ADALIMUMAB
     Dosage: UNK
  4. ENBREL [Suspect]
     Active Substance: ETANERCEPT
     Dosage: UNK (STRETCHING DOSES)
     Route: 065
     Dates: start: 2006, end: 200603

REACTIONS (12)
  - Vomiting [Recovered/Resolved]
  - Restlessness [Recovered/Resolved]
  - Off label use [Unknown]
  - Diarrhoea [Recovered/Resolved]
  - Thrombosis [Unknown]
  - Furuncle [Unknown]
  - Nausea [Unknown]
  - Mood altered [Recovered/Resolved]
  - Intentional product misuse [Unknown]
  - Pain [Unknown]
  - Contusion [Unknown]
  - Insomnia [Unknown]

NARRATIVE: CASE EVENT DATE: 2006
